FAERS Safety Report 25733770 (Version 3)
Quarter: 2025Q3

REPORT INFORMATION
  Report Type: Report from Study
  Country: CA (occurrence: CA)
  Receive Date: 20250828
  Receipt Date: 20250929
  Transmission Date: 20251020
  Serious: Yes (Hospitalization)
  Sender: TAKEDA
  Company Number: CA-TAKEDA-2025TUS074346

PATIENT
  Age: 68 Year
  Sex: Female

DRUGS (11)
  1. VEDOLIZUMAB [Suspect]
     Active Substance: VEDOLIZUMAB
     Indication: Crohn^s disease
  2. VEDOLIZUMAB [Suspect]
     Active Substance: VEDOLIZUMAB
     Dosage: 300 MILLIGRAM, Q4WEEKS
     Dates: start: 20211216
  3. PREDNISONE [Concomitant]
     Active Substance: PREDNISONE
  4. LAMOTRIGINE [Concomitant]
     Active Substance: LAMOTRIGINE
  5. TRAZODONE [Concomitant]
     Active Substance: TRAZODONE HYDROCHLORIDE
  6. CLONAZEPAM [Concomitant]
     Active Substance: CLONAZEPAM
  7. VAGIFEM [Concomitant]
     Active Substance: ESTRADIOL
  8. METFORMIN [Concomitant]
     Active Substance: METFORMIN HYDROCHLORIDE
  9. FLOVENT [Concomitant]
     Active Substance: FLUTICASONE PROPIONATE
  10. VENTOLIN [Concomitant]
     Active Substance: ALBUTEROL SULFATE
  11. CLOBETASOL [Concomitant]
     Active Substance: CLOBETASOL

REACTIONS (4)
  - Depression [Recovering/Resolving]
  - Nervousness [Unknown]
  - Anxiety [Unknown]
  - Heart rate increased [Unknown]
